FAERS Safety Report 14201502 (Version 1)
Quarter: 2017Q4

REPORT INFORMATION
  Report Type: Spontaneous
  Country: US (occurrence: US)
  Receive Date: 20171117
  Receipt Date: 20171117
  Transmission Date: 20180321
  Serious: No
  Sender: FDA-Public Use
  Company Number: US-PERRIGO-16US022963

PATIENT
  Sex: Male
  Weight: 69.39 kg

DRUGS (4)
  1. DRUGS USED IN BENIGN PROSTATIC HYPERTROPHY [Concomitant]
     Active Substance: UNSPECIFIED INGREDIENT
     Indication: PROSTATOMEGALY
     Dosage: UNKNOWN, UNKNOWN
     Route: 065
  2. VITAMINS NOS [Concomitant]
     Active Substance: VITAMINS
     Indication: SUPPLEMENTATION THERAPY
     Dosage: UNKNOWN, UNKNOWN
     Route: 048
  3. ANTIHYPERTENSIVES [Concomitant]
     Active Substance: UNSPECIFIED INGREDIENT
     Indication: HYPERTENSION
     Dosage: UNKNOWN, UNKNOWN
     Route: 048
  4. POLYETHYLENE GLYCOL 3350. [Suspect]
     Active Substance: POLYETHYLENE GLYCOL 3350
     Indication: CONSTIPATION
     Dosage: 17 G, 1 TO 2 TIMES DAILY, PRN
     Route: 048
     Dates: start: 2012, end: 20161219

REACTIONS (3)
  - Drug effect variable [Unknown]
  - Expired product administered [Recovered/Resolved]
  - Inappropriate schedule of drug administration [Recovered/Resolved]

NARRATIVE: CASE EVENT DATE: 2012
